FAERS Safety Report 7691431-5 (Version None)
Quarter: 2011Q3

REPORT INFORMATION
  Report Type: 
  Country: None (occurrence: None)
  Receive Date: 20110818
  Receipt Date: 20110809
  Transmission Date: 20111222
  Serious: Yes (Other)
  Sender: FDA-Public Use
  Company Number: PHHY2010US45115

PATIENT
  Sex: Female

DRUGS (10)
  1. AZOR [Concomitant]
     Dosage: UNK UKN, UNK
  2. SYNTHROID [Concomitant]
     Dosage: 50 UG, QD
  3. IBUPROFEN [Concomitant]
     Dosage: 200 MG, PRN
  4. DIURETICS [Concomitant]
     Dosage: UNK UKN, UNK
  5. ANTIHYPERTENSIVES [Concomitant]
     Dosage: UNK UKN, UNK
  6. AMPYRA [Concomitant]
     Dosage: UNK UKN, UNK
  7. VITAMIN B-12 [Concomitant]
     Dosage: UNK UKN, UNK
  8. EXTAVIA [Suspect]
     Indication: MULTIPLE SCLEROSIS
     Dosage: 0.25 MG, QOD
     Route: 058
     Dates: start: 20100320
  9. ASPIRIN [Concomitant]
     Dosage: 325 MG, QD
  10. VITAMIN D [Concomitant]
     Dosage: 1 DF, QW

REACTIONS (8)
  - MUSCULAR WEAKNESS [None]
  - OEDEMA PERIPHERAL [None]
  - HYPOAESTHESIA [None]
  - MUSCLE SPASMS [None]
  - SPINAL CORD DISORDER [None]
  - GAIT DISTURBANCE [None]
  - MUSCULOSKELETAL STIFFNESS [None]
  - INJECTION SITE CYST [None]
